FAERS Safety Report 12080627 (Version 2)
Quarter: 2016Q1

REPORT INFORMATION
  Report Type: Spontaneous
  Country: US (occurrence: US)
  Receive Date: 20160216
  Receipt Date: 20160229
  Transmission Date: 20160526
  Serious: Yes (Other)
  Sender: FDA-Public Use
  Company Number: US-JNJFOC-20160211951

PATIENT
  Sex: Female

DRUGS (1)
  1. REMICADE [Suspect]
     Active Substance: INFLIXIMAB
     Indication: CROHN^S DISEASE
     Route: 042
     Dates: end: 201509

REACTIONS (4)
  - Knee operation [Unknown]
  - Abdominal pain [Unknown]
  - Nephrolithiasis [Unknown]
  - Stomatitis [Unknown]

NARRATIVE: CASE EVENT DATE: 2015
